FAERS Safety Report 17840482 (Version 1)
Quarter: 2020Q2

REPORT INFORMATION
  Report Type: Spontaneous
  Country: FR (occurrence: FR)
  Receive Date: 20200529
  Receipt Date: 20200529
  Transmission Date: 20200714
  Serious: Yes (Hospitalization, Disabling, Other)
  Sender: FDA-Public Use
  Company Number: FR-ALIMERA SCIENCES LIMITED-FR-IL-2020-004650

PATIENT
  Age: 56 Year
  Sex: Male

DRUGS (3)
  1. ILUVIEN [Suspect]
     Active Substance: FLUOCINOLONE ACETONIDE
     Indication: PRODUCT USED FOR UNKNOWN INDICATION
     Dosage: 0.25 ?G, QD
     Route: 031
     Dates: start: 20190425
  2. OZURDEX [Suspect]
     Active Substance: DEXAMETHASONE
     Indication: PRODUCT USED FOR UNKNOWN INDICATION
     Dosage: UNK
     Route: 031
     Dates: start: 20191128
  3. LUCENTIS [Suspect]
     Active Substance: RANIBIZUMAB
     Indication: PRODUCT USED FOR UNKNOWN INDICATION
     Dosage: UNK
     Route: 031
     Dates: start: 20200213

REACTIONS (8)
  - Retinal detachment [Unknown]
  - Eye operation [Recovered/Resolved]
  - Sudden visual loss [Not Recovered/Not Resolved]
  - Retinitis viral [Unknown]
  - Hypotony of eye [Unknown]
  - Eye operation [Recovered/Resolved]
  - Eye infection [Unknown]
  - Necrotising retinitis [Unknown]

NARRATIVE: CASE EVENT DATE: 202001
